FAERS Safety Report 8252612-5 (Version None)
Quarter: 2012Q2

REPORT INFORMATION
  Report Type: 
  Country: None (occurrence: None)
  Receive Date: 20120402
  Receipt Date: 20120323
  Transmission Date: 20120825
  Serious: Yes (Other)
  Sender: FDA-Public Use
  Company Number: US-BAXTER-2012BAX001121

PATIENT
  Sex: 0

DRUGS (13)
  1. METHOTREXATE [Suspect]
  2. CYCLOPHOSPHAMIDE [Suspect]
  3. VINCRISTINE [Suspect]
  4. RITUXIMAB [Suspect]
  5. CYTARABINE [Suspect]
     Indication: BURKITT'S LYMPHOMA
     Route: 037
  6. DOXORUBICIN HCL [Suspect]
     Indication: BURKITT'S LYMPHOMA
  7. DOXORUBICIN HCL [Suspect]
  8. CYCLOPHOSPHAMIDE [Suspect]
     Indication: BURKITT'S LYMPHOMA
  9. VINCRISTINE [Suspect]
     Indication: BURKITT'S LYMPHOMA
  10. DEXAMETHASONE [Suspect]
     Indication: BURKITT'S LYMPHOMA
  11. DEXAMETHASONE [Suspect]
  12. METHOTREXATE [Suspect]
     Indication: BURKITT'S LYMPHOMA
     Route: 037
  13. CYTARABINE [Suspect]

REACTIONS (1)
  - MYELODYSPLASTIC SYNDROME [None]
